FAERS Safety Report 8247844-6 (Version None)
Quarter: 2012Q1

REPORT INFORMATION
  Report Type: 
  Country: None (occurrence: None)
  Receive Date: 20120330
  Receipt Date: 20120319
  Transmission Date: 20120608
  Serious: Yes (Hospitalization)
  Sender: FDA-Public Use
  Company Number: PHHY2012MX025446

PATIENT
  Sex: Female

DRUGS (1)
  1. RASILEZ [Suspect]
     Indication: HYPERTENSION
     Dosage: 1 DF/DAY
     Route: 048

REACTIONS (7)
  - RENAL FAILURE CHRONIC [None]
  - NEPHROLITHIASIS [None]
  - SOMNOLENCE [None]
  - COORDINATION ABNORMAL [None]
  - HAEMORRHAGE [None]
  - UROSEPSIS [None]
  - AMNESIA [None]
